FAERS Safety Report 12708682 (Version 1)
Quarter: 2016Q3

REPORT INFORMATION
  Report Type: Report from Study
  Country: US (occurrence: US)
  Receive Date: 20160901
  Receipt Date: 20160901
  Transmission Date: 20161109
  Serious: Yes (Other)
  Sender: FDA-Public Use
  Company Number: US-PFIZER INC-2016371192

PATIENT
  Age: 23 Year
  Sex: Male

DRUGS (1)
  1. CLINDAMYCIN PHOSPHATE. [Suspect]
     Active Substance: CLINDAMYCIN PHOSPHATE
     Indication: ENDOCARDITIS BACTERIAL
     Dosage: 300 MG, EVERY 8 HOURS
     Route: 042

REACTIONS (1)
  - Hepatotoxicity [Recovered/Resolved]
